FAERS Safety Report 21548456 (Version 4)
Quarter: 2024Q4

REPORT INFORMATION
  Report Type: Spontaneous
  Country: US (occurrence: US)
  Receive Date: 20221103
  Receipt Date: 20241112
  Transmission Date: 20250115
  Serious: Yes (Hospitalization)
  Sender: PFIZER
  Company Number: US-PFIZER INC-PV202200095113

PATIENT
  Age: 85 Year
  Sex: Female

DRUGS (2)
  1. XELJANZ XR [Suspect]
     Active Substance: TOFACITINIB CITRATE
     Dosage: 11 MG, DAILY
     Route: 048
  2. XELJANZ XR [Suspect]
     Active Substance: TOFACITINIB CITRATE
     Dosage: 11 MG

REACTIONS (4)
  - Blood pressure abnormal [Unknown]
  - Dysphagia [Unknown]
  - Hypoacusis [Unknown]
  - Arthritis [Not Recovered/Not Resolved]
